FAERS Safety Report 19015021 (Version 10)
Quarter: 2022Q2

REPORT INFORMATION
  Report Type: Spontaneous
  Country: CA (occurrence: CA)
  Receive Date: 20210316
  Receipt Date: 20220418
  Transmission Date: 20220720
  Serious: Yes (Other)
  Sender: FDA-Public Use
  Company Number: CA-PFIZER INC-2020443444

PATIENT
  Age: 70 Year
  Sex: Male
  Weight: 80 kg

DRUGS (34)
  1. RUXIENCE [Suspect]
     Active Substance: RITUXIMAB-PVVR
     Indication: Granulomatosis with polyangiitis
     Dosage: 600 MG, WEEKLY FOR 4 WEEKS
     Route: 042
     Dates: start: 20210210, end: 20210304
  2. RUXIENCE [Suspect]
     Active Substance: RITUXIMAB-PVVR
     Dosage: 600 MG, WEEKLY FOR 4 WEEKS
     Route: 042
     Dates: start: 20210217
  3. RUXIENCE [Suspect]
     Active Substance: RITUXIMAB-PVVR
     Dosage: 600 MG, WEEKLY FOR 4 WEEKS
     Route: 042
     Dates: start: 20210225
  4. RUXIENCE [Suspect]
     Active Substance: RITUXIMAB-PVVR
     Dosage: 600 MG, WEEKLY FOR 4 WEEKS
     Route: 042
     Dates: start: 20210225
  5. RUXIENCE [Suspect]
     Active Substance: RITUXIMAB-PVVR
     Dosage: 600 MG, WEEKLY (4 DOSES)
     Route: 042
     Dates: start: 20210304, end: 20210304
  6. RUXIENCE [Suspect]
     Active Substance: RITUXIMAB-PVVR
     Dosage: 600 MG, WEEKLY (4 DOSES)
     Route: 042
     Dates: start: 20210304, end: 20210304
  7. RUXIENCE [Suspect]
     Active Substance: RITUXIMAB-PVVR
     Dosage: 600 MG, WEEKLY (4 DOSES)
     Route: 042
     Dates: start: 20210304, end: 20210304
  8. RUXIENCE [Suspect]
     Active Substance: RITUXIMAB-PVVR
     Dosage: 600 MG, WEEKLY (RE-TREATMENT-4DOSES)
     Route: 042
     Dates: start: 20210804, end: 20210825
  9. RUXIENCE [Suspect]
     Active Substance: RITUXIMAB-PVVR
     Dosage: 600 MG, WEEKLY (RE-TREATMENT-4DOSES)
     Route: 042
     Dates: start: 20210811
  10. RUXIENCE [Suspect]
     Active Substance: RITUXIMAB-PVVR
     Dosage: 600 MG, WEEKLY (RE-TREATMENT-4DOSES)
     Route: 042
     Dates: start: 20210818
  11. RUXIENCE [Suspect]
     Active Substance: RITUXIMAB-PVVR
     Dosage: 600 MG, WEEKLY (RE-TREATMENT-4DOSES)
     Route: 042
     Dates: start: 20210818
  12. RUXIENCE [Suspect]
     Active Substance: RITUXIMAB-PVVR
     Dosage: 600 MG, WEEKLY (RE-TREATMENT-4DOSES)
     Route: 042
     Dates: start: 20210825
  13. RUXIENCE [Suspect]
     Active Substance: RITUXIMAB-PVVR
     Dosage: 600 MG, WEEKLY (RE-TREATMENT-4DOSES)
     Route: 042
     Dates: start: 20210825
  14. RUXIENCE [Suspect]
     Active Substance: RITUXIMAB-PVVR
     Dosage: 600 MG, WEEKLY (RETREATMENT-4 DOSES.)
     Route: 042
     Dates: start: 20210317
  15. RUXIENCE [Suspect]
     Active Substance: RITUXIMAB-PVVR
     Dosage: 600 MG, WEEKLY (RETREATMENT-4 DOSES)
     Route: 042
     Dates: start: 20220217
  16. RUXIENCE [Suspect]
     Active Substance: RITUXIMAB-PVVR
     Dosage: 600 MG, WEEKLY (RETREATMENT-4 DOSES.)
     Route: 042
     Dates: start: 20220324
  17. RUXIENCE [Suspect]
     Active Substance: RITUXIMAB-PVVR
     Dosage: 600 MG, WEEKLY (RETREATMENT-4 DOSES)
     Route: 042
     Dates: start: 20220324
  18. RUXIENCE [Suspect]
     Active Substance: RITUXIMAB-PVVR
     Dosage: 600 MG, WEEKLY (RETREATMENT-4 DOSES)
     Route: 042
     Dates: start: 20220331
  19. RUXIENCE [Suspect]
     Active Substance: RITUXIMAB-PVVR
     Dosage: 600 MG, WEEKLY (RETREATMENT-4 DOSES)
     Route: 042
     Dates: start: 20220407
  20. RUXIENCE [Suspect]
     Active Substance: RITUXIMAB-PVVR
     Dosage: 600 MG, WEEKLY (RETREATMENT-4 DOSES)
     Route: 042
     Dates: start: 20220407
  21. ACTONEL [Concomitant]
     Active Substance: RISEDRONATE SODIUM
     Dosage: 150 MG, 1X/DAY
     Route: 048
  22. ALLOPURINOL [Concomitant]
     Active Substance: ALLOPURINOL
     Dosage: 100 MG, 1X/DAY
     Route: 048
  23. ASPIRIN [Concomitant]
     Active Substance: ASPIRIN
     Dosage: 81 MG EVERY 2 DAY
  24. ASPIRIN [Concomitant]
     Active Substance: ASPIRIN
     Dosage: 81 MG
     Route: 065
  25. ACETAMINOPHEN\CODEINE PHOSPHATE [Concomitant]
     Active Substance: ACETAMINOPHEN\CODEINE PHOSPHATE
     Indication: Premedication
     Dosage: 650 MG
     Dates: start: 20220407
  26. CANDESARTAN [Concomitant]
     Active Substance: CANDESARTAN
     Indication: Blood pressure abnormal
     Dosage: 1 DF
  27. CRESTOR [Concomitant]
     Active Substance: ROSUVASTATIN CALCIUM
     Dosage: 8 MG, 1X/DAY
     Route: 048
  28. DIPHENHYDRAMINE ACEFYLLINATE [Concomitant]
     Indication: Premedication
     Dosage: 25 MG
     Dates: start: 20220407
  29. EZETIMIBE [Concomitant]
     Active Substance: EZETIMIBE
     Dosage: 10 MG, 1X/DAY
     Route: 048
  30. INSULIN NOS [Concomitant]
     Active Substance: INSULIN NOS
     Dosage: 40 UNITS
     Route: 065
  31. PREDNISONE [Concomitant]
     Active Substance: PREDNISONE
     Indication: Premedication
     Dosage: 10 MG
     Dates: start: 20220407
  32. VITAMIN D3 [Concomitant]
     Active Substance: CHOLECALCIFEROL
     Dosage: UNK
  33. CYANOCOBALAMIN [Concomitant]
     Active Substance: CYANOCOBALAMIN
     Dosage: UNK
  34. VALACYCLOVIR HYDROCHLORIDE [Concomitant]
     Active Substance: VALACYCLOVIR HYDROCHLORIDE
     Indication: Herpes simplex
     Dosage: 1 DF
     Route: 046
     Dates: start: 202105

REACTIONS (14)
  - Glaucoma [Recovering/Resolving]
  - Scleritis [Unknown]
  - Condition aggravated [Unknown]
  - Ophthalmic herpes simplex [Unknown]
  - Polyp [Unknown]
  - Oral herpes [Unknown]
  - Blood pressure increased [Unknown]
  - Limb injury [Unknown]
  - Nasopharyngitis [Not Recovered/Not Resolved]
  - Weight decreased [Recovered/Resolved]
  - Somnolence [Unknown]
  - Off label use [Unknown]
  - Off label use [Unknown]
  - Intentional product use issue [Unknown]

NARRATIVE: CASE EVENT DATE: 20210101
